FAERS Safety Report 17125179 (Version 1)
Quarter: 2019Q4

REPORT INFORMATION
  Report Type: Spontaneous
  Country: DE (occurrence: DE)
  Receive Date: 20191206
  Receipt Date: 20191206
  Transmission Date: 20200122
  Serious: Yes (Other)
  Sender: FDA-Public Use
  Company Number: DE-DRREDDYS-GER/GER/19/0116746

PATIENT
  Age: 58 Year
  Sex: Male
  Weight: 68 kg

DRUGS (2)
  1. CITALOPRAM [Suspect]
     Active Substance: CITALOPRAM HYDROBROMIDE
     Indication: ANXIETY
     Dosage: MAX. 15 MG/DIE, TYPICAL 7.5 MG/DIE, VERY SLOW BALANCING
     Route: 048
     Dates: start: 20070215, end: 20130430
  2. CITALOPRAM [Suspect]
     Active Substance: CITALOPRAM HYDROBROMIDE
     Indication: SOCIAL ANXIETY DISORDER

REACTIONS (9)
  - Semen volume decreased [Not Recovered/Not Resolved]
  - Drug dependence [Unknown]
  - Genital discomfort [Not Recovered/Not Resolved]
  - Disturbance in attention [Unknown]
  - Male orgasmic disorder [Not Recovered/Not Resolved]
  - Male sexual dysfunction [Not Recovered/Not Resolved]
  - Impaired work ability [Unknown]
  - Genital burning sensation [Not Recovered/Not Resolved]
  - Restlessness [Unknown]

NARRATIVE: CASE EVENT DATE: 20090101
